FAERS Safety Report 24776607 (Version 1)
Quarter: 2024Q4

REPORT INFORMATION
  Report Type: Other
  Country: ES (occurrence: ES)
  Receive Date: 20241226
  Receipt Date: 20241226
  Transmission Date: 20250115
  Serious: Yes (Other)
  Sender: MACLEODS
  Company Number: None

PATIENT

DRUGS (5)
  1. CELECOXIB [Suspect]
     Active Substance: CELECOXIB
     Indication: Respiratory papilloma
     Dosage: DOSE REDUCED AND WITHDRAWN 5 WEEKS AFTER INITIATION OF THE REDUCED DOSE.
     Route: 048
  2. BEVACIZUMAB [Suspect]
     Active Substance: BEVACIZUMAB
     Indication: Respiratory papilloma
     Route: 042
  3. BEVACIZUMAB [Suspect]
     Active Substance: BEVACIZUMAB
     Route: 026
  4. ERLOTINIB [Suspect]
     Active Substance: ERLOTINIB
     Indication: Respiratory papilloma
     Route: 048
  5. TACROLIMUS [Concomitant]
     Active Substance: TACROLIMUS
     Dosage: UNK (LOWER-THAN-USUAL DOSE)
     Route: 065

REACTIONS (6)
  - Respiratory failure [Unknown]
  - Renal impairment [Recovered/Resolved]
  - Respiratory papilloma [Unknown]
  - Postoperative thoracic procedure complication [Unknown]
  - Proteinuria [Unknown]
  - Off label use [Unknown]
